FAERS Safety Report 9865281 (Version 2)
Quarter: 2014Q1

REPORT INFORMATION
  Report Type: Spontaneous
  Country: US (occurrence: US)
  Receive Date: 20140203
  Receipt Date: 20140203
  Transmission Date: 20141002
  Serious: No
  Sender: FDA-Public Use
  Company Number: US-ALLERGAN-1300905US

PATIENT
  Age: 70 Year
  Sex: Female

DRUGS (5)
  1. RESTASIS [Suspect]
     Indication: INTRAOPERATIVE CARE
     Dosage: 2 GTT, BID
     Route: 047
     Dates: start: 201210, end: 201301
  2. LOSARTAN [Concomitant]
     Indication: HYPERTENSION
     Dosage: 25 MG, QD
     Route: 048
  3. ZETIA [Concomitant]
     Indication: BLOOD CHOLESTEROL INCREASED
     Dosage: 10 MG, UNK
     Route: 048
     Dates: end: 201301
  4. CRESTOR                            /01588601/ [Concomitant]
     Indication: BLOOD CHOLESTEROL INCREASED
     Dosage: 2.5 MG, BI-WEEKLY
     Route: 048
     Dates: end: 201301
  5. BLOOD PRESSURE MEDICATION NOS [Concomitant]
     Indication: HYPERTENSION

REACTIONS (3)
  - Hepatic enzyme increased [Recovering/Resolving]
  - Myalgia [Recovering/Resolving]
  - Off label use [Unknown]
